FAERS Safety Report 6085179-0 (Version None)
Quarter: 2009Q1

REPORT INFORMATION
  Report Type: 
  Country: None (occurrence: None)
  Receive Date: 20090220
  Receipt Date: 20090209
  Transmission Date: 20090719
  Serious: Yes (Other)
  Sender: FDA-Public Use
  Company Number: FR-ROCHE-613851

PATIENT
  Age: 37 Year
  Sex: Male

DRUGS (2)
  1. PEGASYS [Suspect]
     Dosage: FORM: INJECTABLE SOLUTION.
     Route: 058
  2. COPEGUS [Suspect]
     Route: 048

REACTIONS (1)
  - NEURALGIC AMYOTROPHY [None]
